FAERS Safety Report 4589884-4 (Version None)
Quarter: 2005Q1

REPORT INFORMATION
  Report Type: 
  Country: None (occurrence: None)
  Receive Date: 20050223
  Receipt Date: 20041015
  Transmission Date: 20050727
  Serious: Yes (Life-Threatening, Hospitalization, Disabling)
  Sender: FDA-Public Use
  Company Number: US-MERCK-0410USA02475

PATIENT
  Age: 59 Year
  Sex: Female

DRUGS (6)
  1. VIOXX [Suspect]
     Indication: OSTEOPOROSIS
     Route: 048
     Dates: start: 20001001, end: 20040930
  2. VIOXX [Suspect]
     Indication: ARTHRITIS
     Route: 048
     Dates: start: 20001001, end: 20040930
  3. ASPIRIN [Concomitant]
     Route: 065
  4. PLAVIX [Concomitant]
     Route: 065
  5. ZOCOR [Concomitant]
     Route: 048
  6. ACTOS [Concomitant]
     Route: 065

REACTIONS (3)
  - ADVERSE EVENT [None]
  - INJURY [None]
  - MYOCARDIAL INFARCTION [None]
